FAERS Safety Report 23929359 (Version 2)
Quarter: 2025Q1

REPORT INFORMATION
  Report Type: Spontaneous
  Country: US (occurrence: US)
  Receive Date: 20240601
  Receipt Date: 20250212
  Transmission Date: 20250409
  Serious: Yes (Other)
  Sender: DR REDDYS
  Company Number: US-DRL-USA-LIT/USA/24/0007854

PATIENT
  Age: 16 Year
  Sex: Female

DRUGS (8)
  1. ATOMOXETINE [Suspect]
     Active Substance: ATOMOXETINE
     Indication: Narcolepsy
  2. ATOMOXETINE [Suspect]
     Active Substance: ATOMOXETINE
     Indication: Cataplexy
  3. METHYLPHENIDATE HYDROCHLORIDE [Suspect]
     Active Substance: METHYLPHENIDATE HYDROCHLORIDE
     Indication: Narcolepsy
  4. METHYLPHENIDATE HYDROCHLORIDE [Suspect]
     Active Substance: METHYLPHENIDATE HYDROCHLORIDE
     Indication: Cataplexy
  5. DEXTROAMPHETAMINE [Suspect]
     Active Substance: DEXTROAMPHETAMINE
     Indication: Narcolepsy
  6. DEXTROAMPHETAMINE [Suspect]
     Active Substance: DEXTROAMPHETAMINE
     Indication: Cataplexy
  7. SODIUM OXYBATE [Suspect]
     Active Substance: SODIUM OXYBATE
     Indication: Narcolepsy
  8. SODIUM OXYBATE [Suspect]
     Active Substance: SODIUM OXYBATE
     Indication: Cataplexy

REACTIONS (6)
  - Drug ineffective for unapproved indication [Unknown]
  - Suicidal ideation [Unknown]
  - Decreased appetite [Unknown]
  - Depression [Unknown]
  - Mania [Unknown]
  - Anxiety [Unknown]
